FAERS Safety Report 5508148-5 (Version None)
Quarter: 2007Q4

REPORT INFORMATION
  Report Type: 
  Country: None (occurrence: None)
  Receive Date: 20071106
  Receipt Date: 20071017
  Transmission Date: 20080405
  Serious: Yes (Other)
  Sender: FDA-Public Use
  Company Number: DE-GENENTECH-249748

PATIENT
  Sex: Male

DRUGS (1)
  1. LUCENTIS [Suspect]
     Indication: MACULAR DEGENERATION
     Dosage: UNK, Q4W
     Route: 031
     Dates: start: 20070701

REACTIONS (3)
  - LEUKOCYTOCLASTIC VASCULITIS [None]
  - RASH MACULAR [None]
  - URTICARIA [None]
